FAERS Safety Report 14083404 (Version 1)
Quarter: 2017Q4

REPORT INFORMATION
  Report Type: Spontaneous
  Country: US (occurrence: US)
  Receive Date: 20171013
  Receipt Date: 20171013
  Transmission Date: 20180321
  Serious: Yes (Death)
  Sender: FDA-Public Use
  Company Number: US-BAYER-2017-191458

PATIENT
  Age: 86 Year
  Sex: Male
  Weight: 101.1 kg

DRUGS (1)
  1. MIRALAX [Suspect]
     Active Substance: POLYETHYLENE GLYCOL 3350
     Indication: GASTROINTESTINAL DISORDER
     Dosage: 1 DF (1 CAP FULL), PRN
     Route: 048

REACTIONS (4)
  - Panic attack [Unknown]
  - Fall [Fatal]
  - Skin lesion [None]
  - Incorrect drug administration duration [None]
